FAERS Safety Report 6259221-8 (Version None)
Quarter: 2009Q3

REPORT INFORMATION
  Report Type: 
  Country: None (occurrence: None)
  Receive Date: 20090707
  Receipt Date: 20090630
  Transmission Date: 20100115
  Serious: Yes (Hospitalization, Other)
  Sender: FDA-Public Use
  Company Number: IT-AVENTIS-200916485GDDC

PATIENT
  Age: 63 Year
  Sex: Female

DRUGS (2)
  1. ARAVA [Suspect]
     Route: 048
     Dates: start: 20070723, end: 20081105
  2. ARCOXIA [Concomitant]
     Route: 048
     Dates: start: 20080708, end: 20081105

REACTIONS (2)
  - PYREXIA [None]
  - RALES [None]
